FAERS Safety Report 24440756 (Version 3)
Quarter: 2024Q4

REPORT INFORMATION
  Report Type: Spontaneous
  Country: US (occurrence: US)
  Receive Date: 20241016
  Receipt Date: 20241110
  Transmission Date: 20250115
  Serious: No
  Sender: AMGEN
  Company Number: US-AMGEN-USASP2024203734

PATIENT
  Age: 77 Year
  Sex: Female

DRUGS (3)
  1. REPATHA [Suspect]
     Active Substance: EVOLOCUMAB
     Indication: Product used for unknown indication
     Dosage: 140 MILLIGRAM PER MILLILITRE, Q2WK
     Route: 065
     Dates: start: 202404
  2. REPATHA [Suspect]
     Active Substance: EVOLOCUMAB
     Dosage: 140 MILLIGRAM PER MILLILITRE, Q2WK
     Route: 065
  3. REPATHA [Suspect]
     Active Substance: EVOLOCUMAB
     Dosage: 140 MILLIGRAM PER MILLILITRE, Q2WK
     Route: 065

REACTIONS (9)
  - High frequency ablation [Unknown]
  - Phlebectomy [Unknown]
  - Injection site discolouration [Unknown]
  - Accidental exposure to product [Unknown]
  - Device difficult to use [Unknown]
  - Drug dose omission by device [Unknown]
  - Device use error [Unknown]
  - Cardiac disorder [Unknown]
  - Nausea [Unknown]

NARRATIVE: CASE EVENT DATE: 20240101
